FAERS Safety Report 20836281 (Version 1)
Quarter: 2022Q2

REPORT INFORMATION
  Report Type: Report from Study
  Country: US (occurrence: US)
  Receive Date: 20220516
  Receipt Date: 20220516
  Transmission Date: 20220721
  Serious: Yes (Other)
  Sender: FDA-Public Use
  Company Number: US-BRISTOL-MYERS SQUIBB COMPANY-2022-032757

PATIENT
  Age: 52 Year
  Sex: Female
  Weight: 79.3 kg

DRUGS (1)
  1. REVLIMID [Suspect]
     Active Substance: LENALIDOMIDE
     Indication: Plasma cell myeloma
     Dosage: 1 CAP 14 OUT OF 21 DAYS
     Route: 048
     Dates: start: 20220316

REACTIONS (3)
  - Somnolence [Unknown]
  - Rash [Unknown]
  - Off label use [Unknown]
